FAERS Safety Report 17854708 (Version 7)
Quarter: 2020Q4

REPORT INFORMATION
  Report Type: Report from Study
  Country: CA (occurrence: CA)
  Receive Date: 20200603
  Receipt Date: 20201026
  Transmission Date: 20210113
  Serious: Yes (Hospitalization)
  Sender: FDA-Public Use
  Company Number: CA-JNJFOC-20200424901

PATIENT
  Age: 22 Year
  Sex: Male
  Weight: 73.55 kg

DRUGS (3)
  1. STELARA [Suspect]
     Active Substance: USTEKINUMAB
     Route: 058
  2. STELARA [Suspect]
     Active Substance: USTEKINUMAB
     Indication: CROHN^S DISEASE
     Dosage: ON 29/MAY/2020, THE PATIENT RECEIVED 3RD INFUSION AT 90 MG AND COMPLETED PARTIAL HARVEY-BRADSHAW.?ON
     Route: 042
     Dates: start: 20200306
  3. STELARA [Suspect]
     Active Substance: USTEKINUMAB
     Route: 058
     Dates: start: 20200306

REACTIONS (6)
  - Malaise [Unknown]
  - Drug ineffective [Unknown]
  - Product use issue [Unknown]
  - Clostridium difficile infection [Not Recovered/Not Resolved]
  - Crohn^s disease [Not Recovered/Not Resolved]
  - Off label use [Unknown]

NARRATIVE: CASE EVENT DATE: 20200427
